FAERS Safety Report 8678354 (Version 4)
Quarter: 2012Q4

REPORT INFORMATION
  Report Type: 
  Country: JP (occurrence: JP)
  Receive Date: 20120723
  Receipt Date: 20120830
  Transmission Date: 20130627
  Serious: Yes (Hospitalization, Other)
  Sender: FDA-Public Use
  Company Number: JP-EISAI INC-E2090-02220-SPO-JP

PATIENT
  Age: 46 Year
  Sex: Female

DRUGS (2)
  1. EXCEGRAN [Suspect]
     Indication: SYMPTOMATIC EPILEPSY
     Route: 048
     Dates: start: 20100625, end: 20100804
  2. ALEVIATIN [Concomitant]
     Indication: SYMPTOMATIC EPILEPSY
     Route: 048
     Dates: start: 20100625, end: 20100626

REACTIONS (2)
  - Eosinophilic pneumonia [Unknown]
  - Drug reaction with eosinophilia and systemic symptoms [Recovered/Resolved]
